FAERS Safety Report 7411561-2 (Version None)
Quarter: 2011Q2

REPORT INFORMATION
  Report Type: 
  Country: None (occurrence: None)
  Receive Date: 20110413
  Receipt Date: 20100826
  Transmission Date: 20111010
  Serious: No
  Sender: FDA-Public Use
  Company Number: US-BRISTOL-MYERS SQUIBB COMPANY-15257801

PATIENT
  Age: 63 Year
  Sex: Female

DRUGS (9)
  1. BENAZEPRIL HYDROCHLORIDE [Concomitant]
  2. METFORMIN [Concomitant]
  3. WARFARIN [Concomitant]
  4. FERROUS SULFATE [Concomitant]
  5. ERBITUX [Suspect]
     Dates: start: 20100824
  6. ATENOLOL [Concomitant]
  7. CIMETIDINE [Concomitant]
  8. GLIMEPIRIDE [Concomitant]
  9. FUROSEMIDE [Concomitant]

REACTIONS (2)
  - HEADACHE [None]
  - FOAMING AT MOUTH [None]
